FAERS Safety Report 15189434 (Version 3)
Quarter: 2019Q4

REPORT INFORMATION
  Report Type: Other
  Country: CA (occurrence: CA)
  Receive Date: 20180724
  Receipt Date: 20191216
  Transmission Date: 20200122
  Serious: Yes (Other)
  Sender: FDA-Public Use
  Company Number: CA-APOTEX-2018AP017339

PATIENT
  Age: 23 Year
  Sex: Female

DRUGS (4)
  1. RISPERIDONE. [Suspect]
     Active Substance: RISPERIDONE
     Indication: SCHIZOPHRENIA
     Dosage: 1 DF, UNK
     Route: 065
  2. ABILIFY [Suspect]
     Active Substance: ARIPIPRAZOLE
     Indication: SCHIZOPHRENIA
     Dosage: 1 DF, UNK
     Route: 065
  3. LURASIDONE HYDROCHLORIDE. [Suspect]
     Active Substance: LURASIDONE HYDROCHLORIDE
     Indication: SCHIZOPHRENIA
     Dosage: 1 DF, UNK
     Route: 065
  4. PALIPERIDONE. [Suspect]
     Active Substance: PALIPERIDONE
     Indication: SCHIZOPHRENIA
     Dosage: 1 DF, UNK
     Route: 065

REACTIONS (5)
  - Suicide attempt [Unknown]
  - Sexual dysfunction [Unknown]
  - Blood prolactin abnormal [Unknown]
  - Sedation [Unknown]
  - Drug ineffective [Unknown]
